FAERS Safety Report 6203127-7 (Version None)
Quarter: 2009Q2

REPORT INFORMATION
  Report Type: 
  Country: None (occurrence: None)
  Receive Date: 20090522
  Receipt Date: 20090522
  Transmission Date: 20091009
  Serious: Yes (Other)
  Sender: FDA-Public Use
  Company Number: None

PATIENT
  Age: 30 Year
  Sex: Male
  Weight: 92.0802 kg

DRUGS (1)
  1. BACTRIM DS [Suspect]
     Indication: SKIN DISORDER
     Dosage: ONE TAB PO BID
     Route: 048
     Dates: start: 20090511

REACTIONS (4)
  - CHEST DISCOMFORT [None]
  - DYSPNOEA [None]
  - JAW DISORDER [None]
  - SWELLING FACE [None]
